FAERS Safety Report 5410385-5 (Version None)
Quarter: 2007Q3

REPORT INFORMATION
  Report Type: 
  Country: None (occurrence: None)
  Receive Date: 20070713
  Receipt Date: 20070611
  Transmission Date: 20080115
  Serious: No
  Sender: FDA-Public Use
  Company Number: 2007SP002193

PATIENT
  Age: 65 Year
  Sex: Male
  Weight: 72.5755 kg

DRUGS (2)
  1. LUNESTA [Suspect]
     Indication: INSOMNIA
     Dosage: 2 MG;HS;ORAL
     Route: 048
     Dates: start: 20070608, end: 20070610
  2. COREG [Concomitant]

REACTIONS (1)
  - DYSGEUSIA [None]
